FAERS Safety Report 23204290 (Version 1)
Quarter: 2023Q4

REPORT INFORMATION
  Report Type: Other
  Country: TW (occurrence: None)
  Receive Date: 20231120
  Receipt Date: 20231120
  Transmission Date: 20240110
  Serious: Yes (Death, Other)
  Sender: FDA-Public Use
  Company Number: TW-ROCHE-3459649

PATIENT

DRUGS (5)
  1. ATEZOLIZUMAB [Suspect]
     Active Substance: ATEZOLIZUMAB
     Indication: Hepatocellular carcinoma
     Route: 065
  2. BEVACIZUMAB [Suspect]
     Active Substance: BEVACIZUMAB
     Indication: Hepatocellular carcinoma
     Route: 042
  3. NIVOLUMAB [Suspect]
     Active Substance: NIVOLUMAB
     Indication: Hepatocellular carcinoma
     Dosage: 2-3 MG/KG EVERY 2 WEEKS
     Route: 065
  4. IPILIMUMAB [Suspect]
     Active Substance: IPILIMUMAB
     Indication: Hepatocellular carcinoma
     Route: 065
  5. PEMBROLIZUMAB [Suspect]
     Active Substance: PEMBROLIZUMAB
     Indication: Hepatocellular carcinoma
     Dosage: 2-3 MG/KG EVERY 3 WEEKS
     Route: 065

REACTIONS (11)
  - Hepatitis [Fatal]
  - Pneumonitis [Fatal]
  - Fatigue [Unknown]
  - Dermatitis [Unknown]
  - Palmar-plantar erythrodysaesthesia syndrome [Unknown]
  - Colitis [Unknown]
  - Pyrexia [Unknown]
  - Gastrointestinal necrosis [Unknown]
  - Proteinuria [Unknown]
  - Thyroid disorder [Unknown]
  - Oedema [Unknown]
